FAERS Safety Report 10619275 (Version 6)
Quarter: 2021Q1

REPORT INFORMATION
  Report Type: Report from Study
  Country: US (occurrence: US)
  Receive Date: 20141202
  Receipt Date: 20210108
  Transmission Date: 20210419
  Serious: Yes (Disabling, Other)
  Sender: FDA-Public Use
  Company Number: US-SA-2014SA028359

PATIENT

DRUGS (5)
  1. WELLBUTRIN [Concomitant]
     Active Substance: BUPROPION HYDROCHLORIDE
     Dosage: UNK
     Dates: start: 201901
  2. BACLOFEN. [Concomitant]
     Active Substance: BACLOFEN
     Dosage: UNK
  3. TERIFLUNOMIDE. [Suspect]
     Active Substance: TERIFLUNOMIDE
     Indication: MULTIPLE SCLEROSIS
     Dosage: 14 MG,QD
     Route: 048
     Dates: start: 20140215
  4. TERIFLUNOMIDE. [Suspect]
     Active Substance: TERIFLUNOMIDE
     Dosage: 7 MG, BID
     Route: 048
     Dates: start: 20181210
  5. INFLUENZA VACCINE [Suspect]
     Active Substance: INFLUENZA VIRUS VACCINE

REACTIONS (33)
  - Anger [Recovered/Resolved]
  - Condition aggravated [Not Recovered/Not Resolved]
  - Joint injury [Not Recovered/Not Resolved]
  - Sinus disorder [Not Recovered/Not Resolved]
  - Influenza like illness [Unknown]
  - Abdominal pain upper [Unknown]
  - Peroneal nerve palsy [Unknown]
  - Cough [Not Recovered/Not Resolved]
  - Spinal decompression [Unknown]
  - Fatigue [Unknown]
  - Laryngitis [Not Recovered/Not Resolved]
  - Hypoaesthesia [Recovered/Resolved]
  - Crying [Recovered/Resolved]
  - Impaired work ability [Not Recovered/Not Resolved]
  - Fatigue [Not Recovered/Not Resolved]
  - Respiratory disorder [Not Recovered/Not Resolved]
  - Taste disorder [Unknown]
  - Gait disturbance [Recovered/Resolved]
  - Cervical spinal stenosis [Unknown]
  - Dysstasia [Not Recovered/Not Resolved]
  - Temperature intolerance [Not Recovered/Not Resolved]
  - Pain [Recovered/Resolved]
  - Feeling cold [Unknown]
  - Muscle spasms [Unknown]
  - Joint instability [Not Recovered/Not Resolved]
  - Feeling abnormal [Unknown]
  - Product use issue [Unknown]
  - Suicidal behaviour [Recovered/Resolved]
  - Depression [Recovered/Resolved]
  - Peripheral swelling [Not Recovered/Not Resolved]
  - Neuropathy peripheral [Unknown]
  - Hot flush [Unknown]
  - Fatigue [Recovered/Resolved]

NARRATIVE: CASE EVENT DATE: 2014
